FAERS Safety Report 9177485 (Version 2)
Quarter: 2013Q2

REPORT INFORMATION
  Report Type: Spontaneous
  Country: US (occurrence: US)
  Receive Date: 20130321
  Receipt Date: 20130409
  Transmission Date: 20140414
  Serious: Yes (Other)
  Sender: FDA-Public Use
  Company Number: US-FOUGERA-2013FO000068

PATIENT
  Age: 76 Year
  Sex: Male
  Weight: 89.81 kg

DRUGS (4)
  1. SOLARAZE [Suspect]
     Indication: ACTINIC KERATOSIS
     Route: 061
     Dates: start: 2013, end: 20130307
  2. AVAPRO [Concomitant]
     Indication: HYPERTENSION
  3. PRAVASTATIN [Concomitant]
     Indication: HYPERLIPIDAEMIA
  4. LEVOTHYROXINE [Concomitant]
     Indication: THYROID DISORDER

REACTIONS (5)
  - Eyelid ptosis [Recovered/Resolved with Sequelae]
  - Photophobia [Recovering/Resolving]
  - Expired drug administered [Recovered/Resolved]
  - Eye pain [Recovered/Resolved with Sequelae]
  - Diplopia [Recovered/Resolved with Sequelae]
